FAERS Safety Report 4381533-3 (Version None)
Quarter: 2004Q2

REPORT INFORMATION
  Report Type: 
  Country: None (occurrence: None)
  Receive Date: 20040621
  Receipt Date: 20040603
  Transmission Date: 20050107
  Serious: Yes (Hospitalization)
  Sender: FDA-Public Use
  Company Number: NO-MERCK-0406NOR00007

PATIENT
  Age: 66 Year
  Sex: Female

DRUGS (2)
  1. AMITRIPTYLINE HYDROCHLORIDE [Concomitant]
     Indication: DEPRESSION
     Route: 048
  2. ZETIA [Suspect]
     Route: 048
     Dates: start: 20040201

REACTIONS (1)
  - POLYMYALGIA RHEUMATICA [None]
